FAERS Safety Report 13577142 (Version 1)
Quarter: 2017Q2

REPORT INFORMATION
  Report Type: Spontaneous
  Country: FR (occurrence: FR)
  Receive Date: 20170524
  Receipt Date: 20170524
  Transmission Date: 20170830
  Serious: Yes (Death, Other)
  Sender: FDA-Public Use
  Company Number: FR-PFIZER INC-2017223548

PATIENT
  Age: 87 Year
  Sex: Female

DRUGS (11)
  1. ALDACTONE [Suspect]
     Active Substance: SPIRONOLACTONE
     Indication: HYPERTENSION
     Dosage: 25 MG, 1X/DAY
     Route: 048
     Dates: start: 20170328, end: 20170424
  2. COVERSYL /00790702/ [Suspect]
     Active Substance: PERINDOPRIL
     Indication: HYPERTENSION
     Dosage: 5 MG, 1X/DAY
     Route: 048
     Dates: start: 201703, end: 20170424
  3. OXYBUTYNINE [Suspect]
     Active Substance: OXYBUTYNIN CHLORIDE
     Indication: INCONTINENCE
     Dosage: 2 DF, 1X/DAY
     Route: 048
     Dates: start: 201602, end: 20170424
  4. INEGY [Suspect]
     Active Substance: EZETIMIBE\SIMVASTATIN
     Indication: HYPERCHOLESTEROLAEMIA
     Dosage: 1 DF, 1X/DAY
     Route: 048
     Dates: start: 2015, end: 20170424
  5. CACIT VITAMINE D3 [Suspect]
     Active Substance: CALCIUM CARBONATE\CHOLECALCIFEROL
     Indication: HYPOCALCAEMIA
     Dosage: 1 DF, 2X/DAY
     Route: 048
     Dates: end: 20170424
  6. KARDEGIC [Suspect]
     Active Substance: ASPIRIN LYSINE
     Indication: PROPHYLAXIS
     Dosage: 75 MG, 1X/DAY
     Route: 048
     Dates: start: 2015, end: 20170426
  7. REFRESH LIQUIGEL [Suspect]
     Active Substance: CARBOXYMETHYLCELLULOSE SODIUM
     Indication: DRY EYE
     Dosage: 2 DF, 1X/DAY
     Route: 047
     Dates: end: 20170424
  8. TARDYFERON [Concomitant]
     Active Substance: FERROUS SULFATE
  9. MOPRAL /00661201/ [Suspect]
     Active Substance: OMEPRAZOLE SODIUM
     Indication: GASTROOESOPHAGEAL REFLUX DISEASE
     Dosage: 20 MG, 1X/DAY
     Route: 048
     Dates: start: 2015, end: 20170424
  10. CHOLECALCIFEROL [Concomitant]
     Active Substance: CHOLECALCIFEROL
  11. SPECIAFOLDINE [Concomitant]
     Active Substance: FOLIC ACID

REACTIONS (4)
  - Haematoma [Fatal]
  - Altered state of consciousness [Fatal]
  - Hyponatraemia [Recovered/Resolved]
  - Fall [Fatal]

NARRATIVE: CASE EVENT DATE: 20170403
